FAERS Safety Report 5826460-7 (Version None)
Quarter: 2008Q3

REPORT INFORMATION
  Report Type: 
  Country: None (occurrence: None)
  Receive Date: 20080729
  Receipt Date: 20080623
  Transmission Date: 20090109
  Serious: Yes (Other)
  Sender: FDA-Public Use
  Company Number: DE-PFIZER INC-2008061402

PATIENT
  Sex: Male

DRUGS (8)
  1. HYDROXYZINE HYDROCHLORIDE [Suspect]
     Route: 048
     Dates: start: 20080623, end: 20080623
  2. DICLOFENAC SODIUM [Suspect]
     Route: 048
     Dates: start: 20080623, end: 20080623
  3. DICLOFENAC SODIUM [Suspect]
     Route: 048
     Dates: start: 20080623, end: 20080623
  4. METOPROLOL TARTRATE [Suspect]
     Route: 048
     Dates: start: 20080623, end: 20080623
  5. METOPROLOL TARTRATE [Suspect]
     Route: 048
     Dates: start: 20080623, end: 20080623
  6. ACETAMINOPHEN [Suspect]
     Route: 048
     Dates: start: 20080623, end: 20080623
  7. SEDARISTON [Suspect]
     Dosage: TEXT:10 CAPS
     Route: 048
     Dates: start: 20080623, end: 20080623
  8. VALERIANA OFFICINALIS ROOT DRY EXTRACT [Suspect]
     Dosage: TEXT:40 TABS
     Route: 048
     Dates: start: 20080623, end: 20080623

REACTIONS (4)
  - BRADYCARDIA [None]
  - OVERDOSE [None]
  - SOMNOLENCE [None]
  - SUICIDE ATTEMPT [None]
